FAERS Safety Report 12757895 (Version 1)
Quarter: 2016Q3

REPORT INFORMATION
  Report Type: Spontaneous
  Country: US (occurrence: US)
  Receive Date: 20160919
  Receipt Date: 20160919
  Transmission Date: 20161109
  Serious: No
  Sender: FDA-Public Use
  Company Number: US-PFIZER INC-2016431859

PATIENT
  Age: 70 Year
  Sex: Male
  Weight: 93.44 kg

DRUGS (3)
  1. HYDROCODON-ACETAMINOPHN [Concomitant]
     Indication: NECK PAIN
     Dosage: [HYDROCODONE 10]/[ ACETAMINOPHN 32.5], TWICE A DAY
     Route: 048
  2. HYDROCODON-ACETAMINOPHN [Concomitant]
     Indication: MUSCULOSKELETAL PAIN
  3. LYRICA [Suspect]
     Active Substance: PREGABALIN
     Indication: NEUROPATHY PERIPHERAL
     Dosage: 100 MG, 2X/DAY
     Route: 048
     Dates: end: 20160912

REACTIONS (3)
  - Swelling face [Not Recovered/Not Resolved]
  - Sleep disorder [Unknown]
  - Facial pain [Not Recovered/Not Resolved]

NARRATIVE: CASE EVENT DATE: 20160908
